FAERS Safety Report 12840318 (Version 2)
Quarter: 2020Q2

REPORT INFORMATION
  Report Type: Report from Study
  Country: JP (occurrence: JP)
  Receive Date: 20161012
  Receipt Date: 20200617
  Transmission Date: 20200713
  Serious: Yes (Other)
  Sender: FDA-Public Use
  Company Number: JP-BRISTOL-MYERS SQUIBB COMPANY-BMS-2015-057264

PATIENT
  Age: 70 Year
  Sex: Female
  Weight: 33 kg

DRUGS (3)
  1. DACLATASVIR DIHYDROCHLORIDE [Suspect]
     Active Substance: DACLATASVIR DIHYDROCHLORIDE
     Indication: HEPATIC CIRRHOSIS
     Dosage: 60 MG, QD
     Route: 048
     Dates: start: 20150204, end: 20150721
  2. ASUNAPREVIR [Suspect]
     Active Substance: ASUNAPREVIR
     Indication: PRODUCT USED FOR UNKNOWN INDICATION
     Dosage: 100 MG, QD
     Route: 048
     Dates: start: 20150526, end: 20150721
  3. ASUNAPREVIR [Suspect]
     Active Substance: ASUNAPREVIR
     Indication: HEPATIC CIRRHOSIS
     Dosage: 100 MG, BID
     Route: 048
     Dates: start: 20150204, end: 20150525

REACTIONS (3)
  - Hepatic function abnormal [Recovered/Resolved]
  - Hepatic failure [Unknown]
  - Off label use [Unknown]

NARRATIVE: CASE EVENT DATE: 20150526
